FAERS Safety Report 5105546-9 (Version None)
Quarter: 2006Q3

REPORT INFORMATION
  Report Type: 
  Country: None (occurrence: None)
  Receive Date: 20060915
  Receipt Date: 20060905
  Transmission Date: 20061208
  Serious: Yes (Death, Hospitalization)
  Sender: FDA-Public Use
  Company Number: US-JNJFOC-20060902621

PATIENT
  Age: 50 Year
  Sex: Female

DRUGS (5)
  1. CYCLOBENZAPRINE HCL [Suspect]
     Indication: SUICIDE ATTEMPT
     Route: 048
  2. PROPRANOLOL [Suspect]
     Indication: SUICIDE ATTEMPT
     Route: 048
  3. FLUOXETINE [Suspect]
     Indication: SUICIDE ATTEMPT
     Route: 048
  4. NAPROXEN [Suspect]
     Indication: SUICIDE ATTEMPT
     Route: 048
  5. ATORVASTATIN CALCIUM [Suspect]
     Indication: SUICIDE ATTEMPT
     Route: 048

REACTIONS (12)
  - ALANINE AMINOTRANSFERASE INCREASED [None]
  - ASPARTATE AMINOTRANSFERASE INCREASED [None]
  - BLOOD PRESSURE INCREASED [None]
  - COMA [None]
  - COMPLETED SUICIDE [None]
  - ELECTROCARDIOGRAM QRS COMPLEX PROLONGED [None]
  - HEART RATE DECREASED [None]
  - HEPATIC FUNCTION ABNORMAL [None]
  - HYPOTENSION [None]
  - MULTIPLE DRUG OVERDOSE INTENTIONAL [None]
  - PUPIL FIXED [None]
  - RESPIRATORY DISTRESS [None]
